FAERS Safety Report 5166452-7 (Version None)
Quarter: 2006Q4

REPORT INFORMATION
  Report Type: 
  Country: None (occurrence: None)
  Receive Date: 20061130
  Receipt Date: 20061130
  Transmission Date: 20070319
  Serious: Yes (Hospitalization)
  Sender: FDA-Public Use
  Company Number: None

PATIENT
  Age: 49 Year
  Sex: Female

DRUGS (3)
  1. EZ-PAQUE BARIUM SULFATE 60% [Suspect]
     Indication: X-RAY
     Dosage: 6 OZ. ONCE PO
     Route: 048
     Dates: start: 20060817, end: 20060817
  2. PRILOSEC [Concomitant]
  3. ASPIRIN [Concomitant]

REACTIONS (7)
  - DYSPNOEA [None]
  - EYELID OEDEMA [None]
  - PALPITATIONS [None]
  - PRURITUS [None]
  - SWELLING FACE [None]
  - TACHYCARDIA [None]
  - URTICARIA [None]
